FAERS Safety Report 9155916 (Version 1)
Quarter: 2013Q1

REPORT INFORMATION
  Report Type: Spontaneous
  Country: US (occurrence: US)
  Receive Date: 20130311
  Receipt Date: 20130311
  Transmission Date: 20140127
  Serious: No
  Sender: FDA-Public Use
  Company Number: US-009507513-1303USA003602

PATIENT
  Age: 52 Year
  Sex: Male
  Weight: 47.62 kg

DRUGS (5)
  1. PEG-INTRON [Suspect]
     Dosage: 80 MICROGRAM/0.05ML, QW
     Route: 058
  2. RIBAVIRIN [Suspect]
     Dosage: 200 MG, UNK
  3. ADVIL [Concomitant]
     Dosage: UNK
  4. ATRIPLA [Concomitant]
  5. VITAMINS (UNSPECIFIED) [Concomitant]

REACTIONS (1)
  - Injection site reaction [Recovered/Resolved]
